FAERS Safety Report 10144182 (Version 3)
Quarter: 2014Q3

REPORT INFORMATION
  Report Type: Spontaneous
  Country: JP (occurrence: JP)
  Receive Date: 20140430
  Receipt Date: 20140813
  Transmission Date: 20150326
  Serious: Yes (Hospitalization)
  Sender: FDA-Public Use
  Company Number: JP-PFIZER INC-2014120375

PATIENT
  Age: 75 Year
  Sex: Female
  Weight: 50 kg

DRUGS (6)
  1. CELECOX [Suspect]
     Active Substance: CELECOXIB
     Indication: BACK PAIN
     Dosage: 100 MG, 2X/DAY
     Route: 048
     Dates: start: 20140314, end: 20140327
  2. SOLON [Concomitant]
     Active Substance: SOFALCONE
     Indication: MUSCULOSKELETAL PAIN
     Dosage: 50 MG, 2X/DAY
     Route: 048
     Dates: start: 20140314, end: 20140327
  3. BENIDIPINE HYDROCHLORIDE [Concomitant]
     Active Substance: BENIDIPINE HYDROCHLORIDE
     Indication: MUSCULOSKELETAL PAIN
     Dosage: 4 MG, DAILY
     Route: 048
  4. ASPARA-CA [Concomitant]
     Active Substance: CALCIUM ASPARTATE
     Indication: MUSCULOSKELETAL PAIN
     Dosage: 200 MG, DAILY
     Route: 048
     Dates: start: 201310
  5. EDIROL [Concomitant]
     Active Substance: ELDECALCITOL
     Indication: MUSCULOSKELETAL PAIN
     Dosage: 0.75 UG, DAILY
     Route: 048
     Dates: start: 201310
  6. CELECOX [Suspect]
     Active Substance: CELECOXIB
     Indication: MUSCULOSKELETAL PAIN

REACTIONS (3)
  - Dysphonia [Recovering/Resolving]
  - Erythema multiforme [Recovering/Resolving]
  - Cough [Recovering/Resolving]

NARRATIVE: CASE EVENT DATE: 20140323
